FAERS Safety Report 4410053-2 (Version None)
Quarter: 2004Q3

REPORT INFORMATION
  Report Type: 
  Country: None (occurrence: None)
  Receive Date: 20040726
  Receipt Date: 20040716
  Transmission Date: 20050211
  Serious: Yes (Other)
  Sender: FDA-Public Use
  Company Number: 200412266GDS

PATIENT
  Age: 40 Year
  Sex: Male

DRUGS (3)
  1. LEVITRA [Suspect]
     Indication: ERECTILE DYSFUNCTION
     Dosage: ONCE, ORAL
     Route: 048
     Dates: start: 20040601
  2. RISPERDAL [Concomitant]
  3. SEROXAT [Concomitant]

REACTIONS (1)
  - DELIRIUM [None]
